FAERS Safety Report 10917843 (Version 2)
Quarter: 2015Q2

REPORT INFORMATION
  Report Type: Spontaneous
  Country: JP (occurrence: None)
  Receive Date: 20150311
  Receipt Date: 20150401
  Transmission Date: 20150821
  Serious: Yes (Death)
  Sender: FDA-Public Use
  Company Number: 2015BCR00089

PATIENT
  Age: 65 Year
  Sex: Male

DRUGS (2)
  1. RAPIACTA [Suspect]
     Active Substance: PERAMIVIR
     Indication: INFLUENZA
     Route: 042
     Dates: start: 20150219, end: 20150219
  2. KYORIN-AP (SIMETRIDE/ANHYDROUS CAFFEINE) [Concomitant]

REACTIONS (2)
  - Death [None]
  - Myocardial infarction [None]

NARRATIVE: CASE EVENT DATE: 201502
